FAERS Safety Report 18322434 (Version 1)
Quarter: 2020Q3

REPORT INFORMATION
  Report Type: Report from Study
  Country: US (occurrence: US)
  Receive Date: 20200928
  Receipt Date: 20200928
  Transmission Date: 20201103
  Serious: Yes (Other)
  Sender: FDA-Public Use
  Company Number: US-JNJFOC-20200933348

PATIENT
  Sex: Female

DRUGS (6)
  1. SOLIFENACIN [Suspect]
     Active Substance: SOLIFENACIN
     Indication: URINARY INCONTINENCE
     Route: 065
  2. DARIFENACIN. [Suspect]
     Active Substance: DARIFENACIN
     Indication: URINARY INCONTINENCE
     Route: 065
  3. TOLTERODINE [Suspect]
     Active Substance: TOLTERODINE
     Indication: URINARY INCONTINENCE
     Route: 065
  4. TROSPIUM [Suspect]
     Active Substance: TROSPIUM
     Indication: URINARY INCONTINENCE
     Route: 065
  5. FESOTERODINE [Suspect]
     Active Substance: FESOTERODINE
     Indication: URINARY INCONTINENCE
     Route: 065
  6. DITROPAN XL [Suspect]
     Active Substance: OXYBUTYNIN CHLORIDE
     Indication: URINARY INCONTINENCE
     Route: 065

REACTIONS (1)
  - Type 2 diabetes mellitus [Unknown]
